FAERS Safety Report 6752912-1 (Version None)
Quarter: 2010Q2

REPORT INFORMATION
  Report Type: 
  Country: None (occurrence: None)
  Receive Date: 20100602
  Receipt Date: 20100602
  Transmission Date: 20101027
  Serious: Yes (Life-Threatening, Hospitalization)
  Sender: FDA-Public Use
  Company Number: None

PATIENT
  Sex: Male

DRUGS (1)
  1. BACLOFEN [Suspect]
     Indication: HICCUPS
     Dosage: PO 9 DOSES
     Route: 048

REACTIONS (3)
  - CHEYNE-STOKES RESPIRATION [None]
  - HYPOTONIA [None]
  - UNRESPONSIVE TO STIMULI [None]
